FAERS Safety Report 21996908 (Version 1)
Quarter: 2023Q1

REPORT INFORMATION
  Report Type: Spontaneous
  Country: US (occurrence: US)
  Receive Date: 20230215
  Receipt Date: 20230215
  Transmission Date: 20230418
  Serious: Yes (Death)
  Sender: FDA-Public Use
  Company Number: US-Vifor (International) Inc.-VIT-2023-01089

PATIENT
  Age: 96 Year
  Sex: Male

DRUGS (11)
  1. VELTASSA [Suspect]
     Active Substance: PATIROMER
     Indication: Hyperkalaemia
     Dosage: THE PATIENT DISSOLVED CONTENTS OF 1 PACKET INTO 1/3 CUP OF WATER AND DRANK THE FULL AMOUNT
     Route: 048
     Dates: start: 20170621, end: 20230118
  2. AMIODARONE [Concomitant]
     Active Substance: AMIODARONE
  3. ASPIRIN [Concomitant]
     Active Substance: ASPIRIN
  4. ATORVASTATIN [Concomitant]
     Active Substance: ATORVASTATIN
  5. BISOPROLOL FUMARATE [Concomitant]
     Active Substance: BISOPROLOL FUMARATE
  6. ENALAPRIL [Concomitant]
     Active Substance: ENALAPRIL
  7. GABAPENTIN [Concomitant]
     Active Substance: GABAPENTIN
  8. MECLIZINE [Concomitant]
     Active Substance: MECLIZINE HYDROCHLORIDE
  9. REPAGLINIDE [Concomitant]
     Active Substance: REPAGLINIDE
  10. TORSEMIDE [Concomitant]
     Active Substance: TORSEMIDE
  11. VITAMIN B12 [Concomitant]
     Active Substance: CYANOCOBALAMIN

REACTIONS (1)
  - Death [Fatal]

NARRATIVE: CASE EVENT DATE: 20230118
